FAERS Safety Report 5243999-6 (Version None)
Quarter: 2007Q1

REPORT INFORMATION
  Report Type: 
  Country: None (occurrence: None)
  Receive Date: 20070215
  Receipt Date: 20070207
  Transmission Date: 20070707
  Serious: Yes (Death)
  Sender: FDA-Public Use
  Company Number: 2007-154275-NL

PATIENT
  Age: 74 Year
  Sex: Male

DRUGS (2)
  1. MIRTAZAPINE [Suspect]
     Dosage: 60 MG, ORAL
     Route: 048
  2. CITALOPRAM HYDROBROMIDE [Suspect]
     Dosage: 50 MG; ORAL
     Route: 048

REACTIONS (1)
  - COMPLETED SUICIDE [None]
